FAERS Safety Report 23458189 (Version 1)
Quarter: 2024Q1

REPORT INFORMATION
  Report Type: Spontaneous
  Country: JP (occurrence: JP)
  Receive Date: 20240130
  Receipt Date: 20240130
  Transmission Date: 20240410
  Serious: Yes (Hospitalization)
  Sender: FDA-Public Use
  Company Number: JP-MEIJISEIKA-202400416_P_1

PATIENT
  Sex: Female

DRUGS (3)
  1. REFLEX [Suspect]
     Active Substance: MIRTAZAPINE
     Indication: Anxiety disorder
     Dosage: 7.5 MILLIGRAM
     Route: 048
  2. REFLEX [Suspect]
     Active Substance: MIRTAZAPINE
     Indication: Depression
     Dosage: 15 MILLIGRAM
     Route: 048
     Dates: start: 20231017, end: 20240106
  3. BROTIZOLAM [Concomitant]
     Active Substance: BROTIZOLAM
     Dosage: UNK
     Route: 065

REACTIONS (7)
  - Fall [Unknown]
  - Subarachnoid haemorrhage [Unknown]
  - Somnolence [Unknown]
  - Restlessness [Unknown]
  - Contusion [Unknown]
  - Subcutaneous haematoma [Unknown]
  - Off label use [Unknown]
